FAERS Safety Report 25639703 (Version 1)
Quarter: 2025Q3

REPORT INFORMATION
  Report Type: Spontaneous
  Country: US (occurrence: None)
  Receive Date: 20250802
  Receipt Date: 20250802
  Transmission Date: 20251020
  Serious: Yes (Death, Hospitalization)
  Sender: FDA-CTU
  Company Number: None

PATIENT
  Age: 21 Year
  Sex: Male
  Weight: 107.9 kg

DRUGS (12)
  1. BUSULFAN [Suspect]
     Active Substance: BUSULFAN
     Dates: end: 20230505
  2. CYCLOPHOSPHAMIDE [Suspect]
     Active Substance: CYCLOPHOSPHAMIDE
     Dates: end: 20230513
  3. FLUDARABINE PHOSPHATE [Suspect]
     Active Substance: FLUDARABINE PHOSPHATE
     Dates: end: 20230506
  4. CELLCEPT [Suspect]
     Active Substance: MYCOPHENOLATE MOFETIL
     Dates: end: 20230614
  5. THIOTEPA [Suspect]
     Active Substance: THIOTEPA
     Dates: end: 20230502
  6. ACYCLOVIR [Concomitant]
     Active Substance: ACYCLOVIR
  7. AMLODIPINE [Concomitant]
     Active Substance: AMLODIPINE BESYLATE
  8. VANCOMYCIN [Concomitant]
     Active Substance: VANCOMYCIN
  9. CIDOFOVIR [Concomitant]
     Active Substance: CIDOFOVIR
  10. FOSCARNET [Concomitant]
     Active Substance: FOSCARNET
  11. METHYLPREDNISOLONE [Concomitant]
     Active Substance: METHYLPREDNISOLONE
  12. TACROLIMUS [Suspect]
     Active Substance: TACROLIMUS
     Dates: end: 20230616

REACTIONS (12)
  - Cystitis haemorrhagic [None]
  - Cystitis [None]
  - Epistaxis [None]
  - Coagulopathy [None]
  - Hepatic failure [None]
  - Blood loss anaemia [None]
  - Polyomavirus viraemia [None]
  - Staphylococcal infection [None]
  - Human herpesvirus 6 infection [None]
  - Mental status changes [None]
  - Cardiac arrest [None]
  - Multiple organ dysfunction syndrome [None]

NARRATIVE: CASE EVENT DATE: 20230522
